FAERS Safety Report 5633210-6 (Version None)
Quarter: 2008Q1

REPORT INFORMATION
  Report Type: 
  Country: None (occurrence: None)
  Receive Date: 20080215
  Receipt Date: 20080212
  Transmission Date: 20080703
  Serious: Yes (Hospitalization)
  Sender: FDA-Public Use
  Company Number: 2008SP003148

PATIENT
  Age: 60 Year
  Sex: Male

DRUGS (12)
  1. TEMODAL [Suspect]
     Indication: OLIGODENDROGLIOMA
     Dosage: 110 MG/M2; QD; PO
     Route: 048
     Dates: start: 20060808, end: 20070327
  2. CARMUSTINE [Suspect]
     Indication: OLIGODENDROGLIOMA
     Dosage: 150 MG/M2
     Dates: start: 20060808, end: 20070322
  3. KEPPRA [Concomitant]
  4. BACTRIM [Concomitant]
  5. TAMSULOSIN HCL [Concomitant]
  6. STILNOX [Concomitant]
  7. IMIPOMP [Concomitant]
  8. MEDROL [Concomitant]
  9. STABLON [Concomitant]
  10. PERMIXON [Concomitant]
  11. ALENDRONATE SODIUM [Concomitant]
  12. CALCIUM [Concomitant]

REACTIONS (1)
  - GAMMA-GLUTAMYLTRANSFERASE INCREASED [None]
